FAERS Safety Report 4295120-9 (Version None)
Quarter: 2004Q1

REPORT INFORMATION
  Report Type: 
  Country: None (occurrence: None)
  Receive Date: 20040212
  Receipt Date: 20040204
  Transmission Date: 20041129
  Serious: Yes (Hospitalization)
  Sender: FDA-Public Use
  Company Number: US-JNJFOC-20031204346

PATIENT
  Age: 80 Year
  Sex: Female
  Weight: 52.6173 kg

DRUGS (11)
  1. REMINYL [Suspect]
     Indication: DEMENTIA ALZHEIMER'S TYPE
     Dosage: 4 MG, 2 IN 1 DAY, ORAL
     Route: 048
     Dates: start: 20031022, end: 20031029
  2. MAVIK [Concomitant]
  3. ASA (TABLETS) ACETYLSALICYLIC ACID [Concomitant]
  4. ACTOS [Concomitant]
  5. NOVOLIN (INSULIN HUMAN INJECTION, ISOPHANE) [Concomitant]
  6. HUMALOG [Concomitant]
  7. TUMS (CALCIUM CARBONATE) TABLETS [Concomitant]
  8. COMBIVENT (COMBIVENT) INHALATION [Concomitant]
  9. PLETAL [Concomitant]
  10. ACETYLSALICYLIC ACID SRT [Concomitant]
  11. MIACALIN (CALCITONIN, SALMON) SPRAY [Concomitant]

REACTIONS (6)
  - ANAEMIA [None]
  - ANOREXIA [None]
  - DIARRHOEA HAEMORRHAGIC [None]
  - GASTRIC ULCER [None]
  - HELICOBACTER INFECTION [None]
  - LETHARGY [None]
